FAERS Safety Report 4635695-0 (Version None)
Quarter: 2005Q2

REPORT INFORMATION
  Report Type: 
  Country: None (occurrence: None)
  Receive Date: 20050413
  Receipt Date: 20050331
  Transmission Date: 20051028
  Serious: Yes (Hospitalization, Other)
  Sender: FDA-Public Use
  Company Number: HQWYE185918MAR05

PATIENT
  Age: 76 Year
  Sex: Female
  Weight: 59.5 kg

DRUGS (21)
  1. RAPAMUNE [Suspect]
     Indication: PROPHYLAXIS AGAINST TRANSPLANT REJECTION
     Dosage: LOADING DOSE OF 15 MG, ORAL; 5 MG 1X PER 1 DAY, ORAL; 3 MG 1X PER 1 DAY, ORAL
     Route: 048
     Dates: start: 20050304, end: 20050304
  2. RAPAMUNE [Suspect]
     Indication: PROPHYLAXIS AGAINST TRANSPLANT REJECTION
     Dosage: LOADING DOSE OF 15 MG, ORAL; 5 MG 1X PER 1 DAY, ORAL; 3 MG 1X PER 1 DAY, ORAL
     Route: 048
     Dates: start: 20050305, end: 20050307
  3. RAPAMUNE [Suspect]
     Indication: PROPHYLAXIS AGAINST TRANSPLANT REJECTION
     Dosage: LOADING DOSE OF 15 MG, ORAL; 5 MG 1X PER 1 DAY, ORAL; 3 MG 1X PER 1 DAY, ORAL
     Route: 048
     Dates: start: 20050308
  4. CELLCEPT [Suspect]
     Indication: PROPHYLAXIS AGAINST TRANSPLANT REJECTION
     Dosage: 1000 MG 2X PER 1 DAY, ORAL
     Route: 048
     Dates: start: 20050303
  5. CORTICOSTEROID NOS (CORTICOSTEROID NOS) [Suspect]
     Indication: PROPHYLAXIS AGAINST TRANSPLANT REJECTION
  6. ZENAPAX [Concomitant]
  7. ALBUTEROL [Concomitant]
  8. IPRATROPIUM BROMIDE [Concomitant]
  9. PANTOPRAZOLE (PANTOPRAZOLE) [Concomitant]
  10. SULFAMETOXAZOL MED TRIMETOPRIM MITE (SULFAMETHOXAZOLE/TRIMETHOPRIM) [Concomitant]
  11. MULTIVITAMINS (ASCORBIC ACKD/ERGOCALCIFEROL/FOLIC ACID/NICOTINAMIDE/PA [Concomitant]
  12. TRAZONE (TRAZONE) [Concomitant]
  13. CLOTRIMAZOLE (CLOTRIMAZOLE) [Concomitant]
  14. SERTRALINE (SERTRALINE) [Concomitant]
  15. PROPOXYPHENE (DEXTROPROPOXYPHENE) [Concomitant]
  16. ZOLPIDEM TARTRATE [Concomitant]
  17. ACETAMINOPHEN [Concomitant]
  18. ALPRAZOLAM [Concomitant]
  19. INSULIN HUMAN (INSULIN HUMAN) [Concomitant]
  20. MILK OF MAGNESIA (MAGNESIUM HYDROXIDE) [Concomitant]
  21. BELLADONNA (BELLADONNA EXRACT) [Concomitant]

REACTIONS (13)
  - ATRIAL FIBRILLATION [None]
  - CONDITION AGGRAVATED [None]
  - HAEMOGLOBIN DECREASED [None]
  - HYDRONEPHROSIS [None]
  - HYPERPHOSPHATAEMIA [None]
  - HYPERTENSION [None]
  - NAUSEA [None]
  - PERINEPHRIC COLLECTION [None]
  - POST PROCEDURAL COMPLICATION [None]
  - SYNCOPE VASOVAGAL [None]
  - TACHYCARDIA [None]
  - VOMITING [None]
  - WEIGHT INCREASED [None]
